FAERS Safety Report 18295151 (Version 3)
Quarter: 2021Q1

REPORT INFORMATION
  Report Type: Spontaneous
  Country: US (occurrence: US)
  Receive Date: 20200922
  Receipt Date: 20210212
  Transmission Date: 20210419
  Serious: Yes (Hospitalization)
  Sender: FDA-Public Use
  Company Number: US-GLOBAL BLOOD THERAPEUTICS INC-US-GBT-20-02307

PATIENT
  Age: 52 Year
  Sex: Male
  Weight: 56.7 kg

DRUGS (2)
  1. OXBRYTA [Suspect]
     Active Substance: VOXELOTOR
     Indication: SICKLE CELL DISEASE
     Route: 048
     Dates: start: 202005, end: 2021
  2. OXBRYTA [Suspect]
     Active Substance: VOXELOTOR
     Route: 048
     Dates: start: 202101

REACTIONS (6)
  - Haemoglobin decreased [Unknown]
  - Malaise [Unknown]
  - Haematocrit decreased [Unknown]
  - Diarrhoea [Recovered/Resolved]
  - Therapy non-responder [Unknown]
  - Weight decreased [Unknown]

NARRATIVE: CASE EVENT DATE: 202005
